FAERS Safety Report 5165371-X (Version None)
Quarter: 2006Q4

REPORT INFORMATION
  Report Type: 
  Country: None (occurrence: None)
  Receive Date: 20061206
  Receipt Date: 20061020
  Transmission Date: 20070319
  Serious: Yes (Hospitalization, Other)
  Sender: FDA-Public Use
  Company Number: PHFR2006GB03138

PATIENT
  Age: 23 Year
  Sex: Female

DRUGS (4)
  1. OLANZAPINE [Suspect]
     Dosage: 170 MG, ONCE/SINGLE
     Route: 048
     Dates: start: 20061019
  2. AMISULPRIDE [Suspect]
     Dosage: 4.4 G, ONCE/SINGLE
     Route: 048
     Dates: start: 20061019
  3. AMISULPRIDE [Suspect]
     Dosage: 1000MG IN DIVIDED DOSE
     Route: 048
  4. CLOZARIL [Suspect]
     Dosage: 1.75 G, ONCE/SINGLE
     Route: 048
     Dates: start: 20061019

REACTIONS (3)
  - OVERDOSE [None]
  - SINUS TACHYCARDIA [None]
  - SOMNOLENCE [None]
